FAERS Safety Report 4614911-5 (Version None)
Quarter: 2005Q1

REPORT INFORMATION
  Report Type: 
  Country: None (occurrence: None)
  Receive Date: 20050318
  Receipt Date: 20050318
  Transmission Date: 20050727
  Serious: Yes (Hospitalization)
  Sender: FDA-Public Use
  Company Number: None

PATIENT
  Sex: Female
  Weight: 61.2356 kg

DRUGS (5)
  1. EFFEXOR XR [Suspect]
     Indication: DEPRESSION
     Dosage: 300 MG 1 TIME A DAY
     Dates: start: 20040430, end: 20041213
  2. WELLBUTRIN XL [Concomitant]
  3. TRAZEDONE [Concomitant]
  4. YASMIN B/C [Concomitant]
  5. VALTREX [Concomitant]

REACTIONS (15)
  - ABNORMAL DREAMS [None]
  - AGITATION [None]
  - AMNESIA [None]
  - BURNS THIRD DEGREE [None]
  - CRYING [None]
  - DEPRESSION [None]
  - DISORIENTATION [None]
  - DRUG WITHDRAWAL SYNDROME [None]
  - ECONOMIC PROBLEM [None]
  - INTENTIONAL SELF-INJURY [None]
  - MICTURITION DISORDER [None]
  - NIGHTMARE [None]
  - THINKING ABNORMAL [None]
  - THIRST [None]
  - WEIGHT INCREASED [None]
